FAERS Safety Report 6609495-6 (Version None)
Quarter: 2010Q1

REPORT INFORMATION
  Report Type: 
  Country: None (occurrence: None)
  Receive Date: 20100302
  Receipt Date: 20100219
  Transmission Date: 20100710
  Serious: Yes (Hospitalization)
  Sender: FDA-Public Use
  Company Number: US-JNJFOC-20100210258

PATIENT
  Age: 2 Year
  Sex: Female
  Weight: 11.4 kg

DRUGS (3)
  1. TYLENOL (CAPLET) [Suspect]
     Indication: PYREXIA
     Route: 048
  2. TYLENOL (CAPLET) [Suspect]
     Dosage: X 3 DOSES (0600, 1000 AND 1400)
     Route: 048
  3. TYLENOL (CAPLET) [Suspect]
     Route: 048

REACTIONS (2)
  - ACCIDENTAL DRUG INTAKE BY CHILD [None]
  - ACCIDENTAL OVERDOSE [None]
